FAERS Safety Report 7537205-7 (Version None)
Quarter: 2011Q2

REPORT INFORMATION
  Report Type: 
  Country: None (occurrence: None)
  Receive Date: 20110603
  Receipt Date: 20110518
  Transmission Date: 20111010
  Serious: Yes (Other)
  Sender: FDA-Public Use
  Company Number: 2011MA005603

PATIENT
  Age: 7 Month

DRUGS (1)
  1. CLOBETASOL PROPIONATE [Suspect]
     Indication: DERMATITIS DIAPER
     Dosage: TOP
     Route: 061

REACTIONS (6)
  - INCREASED APPETITE [None]
  - CUSHING'S SYNDROME [None]
  - ASPARTATE AMINOTRANSFERASE INCREASED [None]
  - WEIGHT INCREASED [None]
  - BLOOD PRESSURE DECREASED [None]
  - ALANINE AMINOTRANSFERASE INCREASED [None]
